FAERS Safety Report 12571146 (Version 1)
Quarter: 2016Q3

REPORT INFORMATION
  Report Type: Spontaneous
  Country: US (occurrence: US)
  Receive Date: 20160719
  Receipt Date: 20160719
  Transmission Date: 20161109
  Serious: No
  Sender: FDA-Public Use
  Company Number: US-TEVA-673145USA

PATIENT
  Sex: Female

DRUGS (1)
  1. ENJUVIA [Suspect]
     Active Substance: ESTROGENS, CONJUGATED SYNTHETIC B
     Indication: MENOPAUSAL SYMPTOMS
     Route: 065

REACTIONS (4)
  - Palpitations [Unknown]
  - Agitation [Unknown]
  - Heart rate increased [Unknown]
  - Reaction to drug excipients [Unknown]
